FAERS Safety Report 20975800 (Version 1)
Quarter: 2022Q2

REPORT INFORMATION
  Report Type: Spontaneous
  Country: ES (occurrence: ES)
  Receive Date: 20220617
  Receipt Date: 20220617
  Transmission Date: 20220721
  Serious: Yes (Hospitalization, Other)
  Sender: FDA-Public Use
  Company Number: ES-SA-2022SA206139

PATIENT
  Age: 65 Year
  Sex: Male
  Weight: 63.1 kg

DRUGS (14)
  1. OXALIPLATIN [Suspect]
     Active Substance: OXALIPLATIN
     Indication: Pancreatic carcinoma
     Dosage: 85 UG/KG,1 IN 2 WEEKS
     Route: 042
     Dates: start: 20220425
  2. IRINOTECAN [Suspect]
     Active Substance: IRINOTECAN
     Indication: Pancreatic carcinoma
     Dosage: 150 MG, CYCLIC(DAYS 1, AND 15 OF EACH 28 DAY CYCLE)
     Route: 042
     Dates: start: 20220425
  3. FLUOROURACIL SODIUM [Suspect]
     Active Substance: FLUOROURACIL SODIUM
     Indication: Pancreatic carcinoma
     Dosage: 2400 MG/M2, 1 IN 2 WEEKS
     Route: 042
     Dates: start: 20220425
  4. INVESTIGATIONAL PRODUCT [Suspect]
     Active Substance: INVESTIGATIONAL PRODUCT
     Indication: Pancreatic carcinoma
     Dosage: 500 MG,1 IN 4 WEEKS
     Route: 041
     Dates: start: 20220427
  5. LEUCOVORIN [Suspect]
     Active Substance: LEUCOVORIN
     Indication: Pancreatic carcinoma
     Dosage: 400 MG/M2 , 1 IN 2 WEEKS
     Route: 042
     Dates: start: 20220425
  6. GILORALIMAB [Suspect]
     Active Substance: GILORALIMAB
     Indication: Pancreatic carcinoma
     Dosage: 0.1 MG/KG, 1 IN 4 WEEKS
     Route: 042
     Dates: start: 20220427
  7. METOCLOPRAMIDE HYDROCHLORIDE [Suspect]
     Active Substance: METOCLOPRAMIDE HYDROCHLORIDE
  8. OMEPRAZOLE [Concomitant]
     Active Substance: OMEPRAZOLE
     Indication: Gastric disorder
     Dosage: 40 MG, 1X/DAY(QD)
     Dates: start: 20220420
  9. PANCRELIPASE [Concomitant]
     Active Substance: PANCRELIPASE
     Indication: Pancreatic failure
     Dosage: 2500 IU, 4X/DAY(EVERY 6 HOUR)
     Route: 048
     Dates: start: 20220420
  10. VITAMIN D COMPACT [Concomitant]
     Indication: Osteoporosis
     Dosage: 1 DF, 1X/DAY(QD)
     Route: 048
     Dates: start: 20220420
  11. METFORMIN [Concomitant]
     Active Substance: METFORMIN HYDROCHLORIDE
     Indication: Diabetes mellitus
     Dosage: 1700 MG, 2X/DAY( BID EVERY 12 HOURS)
     Route: 048
     Dates: start: 20220420
  12. ATORVASTATIN [Concomitant]
     Active Substance: ATORVASTATIN
     Indication: Dyslipidaemia
     Dosage: 20 MG, 1X/DAY(QD)
     Dates: start: 20220422
  13. FERROUS SULFATE [Concomitant]
     Active Substance: FERROUS SULFATE
     Indication: Anaemia
     Dosage: 1 DF, 1X/DAY(QD)
     Route: 048
     Dates: start: 20220422
  14. LANTUS [Concomitant]
     Active Substance: INSULIN GLARGINE
     Indication: Diabetes mellitus
     Dosage: 14 IU, 1X/DAY(QD)
     Route: 058
     Dates: start: 20220420

REACTIONS (5)
  - Diarrhoea [Recovered/Resolved]
  - Mucosal inflammation [Recovered/Resolved]
  - Hypokalaemia [Recovered/Resolved]
  - Febrile neutropenia [Recovered/Resolved]
  - Urine analysis abnormal [Unknown]

NARRATIVE: CASE EVENT DATE: 20220518
